FAERS Safety Report 25524162 (Version 1)
Quarter: 2025Q3

REPORT INFORMATION
  Report Type: Spontaneous
  Country: EU (occurrence: EU)
  Receive Date: 20250707
  Receipt Date: 20250707
  Transmission Date: 20251021
  Serious: Yes (Hospitalization)
  Sender: MYLAN
  Company Number: EU-MYLANLABS-2025M1055422

PATIENT
  Age: 75 Year
  Sex: Male

DRUGS (3)
  1. APIXABAN [Suspect]
     Active Substance: APIXABAN
     Indication: Cardiac ventricular thrombosis
     Dosage: 5 MILLIGRAM, BID
  2. APIXABAN [Suspect]
     Active Substance: APIXABAN
     Indication: Mitral valve calcification
  3. ASPIRIN [Suspect]
     Active Substance: ASPIRIN
     Indication: Coronary artery disease

REACTIONS (2)
  - Drug ineffective [Unknown]
  - Off label use [Unknown]
